FAERS Safety Report 8314992-1 (Version None)
Quarter: 2012Q1

REPORT INFORMATION
  Report Type: 
  Country: None (occurrence: None)
  Receive Date: 20120315
  Receipt Date: 20110526
  Transmission Date: 20120608
  Serious: Yes (Other)
  Sender: FDA-Public Use
  Company Number: PHHY2011US46990

PATIENT
  Age: 34 Year
  Sex: Female

DRUGS (21)
  1. OMEPRAZOLE [Concomitant]
  2. CORTICOSTEROIDS (NO INGREDIENT/SUBSTANCES) [Concomitant]
  3. GILENYA [Suspect]
     Indication: RELAPSING-REMITTING MULTIPLE SCLEROSIS
     Dosage: 0.5 MG, QD, ORAL
     Route: 048
     Dates: start: 20110505, end: 20110527
  4. XANAX [Concomitant]
  5. CALCIUM [Concomitant]
  6. VICODIN [Concomitant]
  7. ASPIRIN [Concomitant]
  8. EVENING PRIMROSE OIL (GAMOLENIC ACID) [Concomitant]
  9. PRISTIQ [Concomitant]
  10. COD-LIVER OIL [Concomitant]
  11. VITAMIN D [Concomitant]
  12. ASCORBIC ACID [Concomitant]
  13. VITAMIN B1 TAB [Concomitant]
  14. FLAXSEED OIL (LINUM USITATISSIMUM SEED OIL) [Concomitant]
  15. ACTHAR GEL (CORTICOTROPHIN INJECTION, REPOSITORY) [Concomitant]
  16. FIORICET [Concomitant]
  17. ROPINIROLE [Concomitant]
  18. ANTICHOLINERGICS (NO INGREDIENT/SUBSTANCES) [Concomitant]
  19. GABAPENTIN [Concomitant]
  20. IBUPROFEN [Concomitant]
  21. MAGNESIUM [Concomitant]

REACTIONS (19)
  - DIZZINESS [None]
  - NAUSEA [None]
  - GAIT DISTURBANCE [None]
  - VISUAL FIELD DEFECT [None]
  - VISUAL ACUITY REDUCED [None]
  - DIPLOPIA [None]
  - TUNNEL VISION [None]
  - EYE DISORDER [None]
  - VISUAL IMPAIRMENT [None]
  - VISION BLURRED [None]
  - HEADACHE [None]
  - FACIAL PAIN [None]
  - MULTIPLE SCLEROSIS RELAPSE [None]
  - FATIGUE [None]
  - EYELID PTOSIS [None]
  - PAIN IN JAW [None]
  - DIARRHOEA [None]
  - BLINDNESS [None]
  - COLOUR BLINDNESS ACQUIRED [None]
